FAERS Safety Report 7658283-0 (Version None)
Quarter: 2011Q3

REPORT INFORMATION
  Report Type: 
  Country: None (occurrence: None)
  Receive Date: 20110802
  Receipt Date: 20110721
  Transmission Date: 20111222
  Serious: Yes (Hospitalization, Other)
  Sender: FDA-Public Use
  Company Number: IE-005320

PATIENT
  Sex: Female
  Weight: 67.5 kg

DRUGS (3)
  1. MENOPUR [Suspect]
     Indication: INFERTILITY FEMALE
     Dosage: 75 IU SUBCUTANEOUS, 150 IU SUBCUTANEOUS
     Route: 058
     Dates: start: 20110325, end: 20110328
  2. MENOPUR [Suspect]
     Indication: INFERTILITY FEMALE
     Dosage: 75 IU SUBCUTANEOUS, 150 IU SUBCUTANEOUS
     Route: 058
     Dates: start: 20110314, end: 20110324
  3. OVITRELLE (OVITRELLE) 250 UG (NOT SPECIFIED) [Suspect]
     Indication: PRODUCT USED FOR UNKNOWN INDICATION
     Dosage: 250 UG SUBCUTANEOUS
     Route: 058
     Dates: start: 20110326

REACTIONS (9)
  - DYSPNOEA EXERTIONAL [None]
  - OVARIAN ENLARGEMENT [None]
  - CONSTIPATION [None]
  - OVARIAN HYPERSTIMULATION SYNDROME [None]
  - ABDOMINAL PAIN [None]
  - PELVIC FLUID COLLECTION [None]
  - ABDOMINAL DISTENSION [None]
  - NAUSEA [None]
  - DYSPNOEA [None]
